FAERS Safety Report 9169195 (Version 1)
Quarter: 2013Q1

REPORT INFORMATION
  Report Type: Report from Study
  Country: FR (occurrence: FR)
  Receive Date: 20130318
  Receipt Date: 20130318
  Transmission Date: 20140127
  Serious: Yes (Hospitalization)
  Sender: FDA-Public Use
  Company Number: FR-ROCHE-1199804

PATIENT
  Age: 56 Year
  Sex: Female

DRUGS (10)
  1. TOCILIZUMAB [Suspect]
     Indication: RHEUMATOID ARTHRITIS
     Route: 041
     Dates: start: 20110215
  2. TOCILIZUMAB [Suspect]
     Route: 065
     Dates: start: 20110315
  3. TOCILIZUMAB [Suspect]
     Route: 065
     Dates: start: 20110617, end: 20110919
  4. LAMALINE [Suspect]
     Indication: PRODUCT USED FOR UNKNOWN INDICATION
     Route: 065
  5. CORTANCYL [Concomitant]
     Route: 065
     Dates: start: 20110919
  6. CORTANCYL [Concomitant]
     Route: 065
     Dates: start: 20120321
  7. CORTANCYL [Concomitant]
     Route: 065
     Dates: start: 20120321
  8. CORTANCYL [Concomitant]
     Route: 065
     Dates: start: 20120730
  9. PARIET [Concomitant]
     Route: 065
  10. ABATACEPT [Concomitant]
     Route: 065
     Dates: start: 20120321

REACTIONS (14)
  - Fall [Recovered/Resolved]
  - Rib fracture [Recovered/Resolved]
  - Hot flush [Recovered/Resolved]
  - Liver function test abnormal [Recovered/Resolved]
  - Dry skin [Recovered/Resolved]
  - Lipids abnormal [Recovered/Resolved]
  - Bronchial disorder [Recovered/Resolved]
  - Gastroenteritis [Recovered/Resolved]
  - Hot flush [Recovered/Resolved]
  - Bronchitis [Recovered/Resolved]
  - Cholestasis [Recovered/Resolved]
  - Pharyngitis [Recovered/Resolved]
  - Chest discomfort [Recovered/Resolved]
  - Pruritus [Recovered/Resolved]
